FAERS Safety Report 4558852-0 (Version None)
Quarter: 2005Q1

REPORT INFORMATION
  Report Type: 
  Country: None (occurrence: None)
  Receive Date: 20050121
  Receipt Date: 20050114
  Transmission Date: 20050727
  Serious: Yes (Other)
  Sender: FDA-Public Use
  Company Number: JP-BRISTOL-MYERS SQUIBB COMPANY-12828430

PATIENT
  Age: 71 Year
  Sex: Female

DRUGS (6)
  1. ENDOXAN [Suspect]
     Indication: ANTI-NEUTROPHIL CYTOPLASMIC ANTIBODY POSITIVE VASCULITIS
     Route: 048
     Dates: start: 20041123, end: 20041226
  2. GABEXATE MESILATE [Suspect]
     Indication: DISSEMINATED INTRAVASCULAR COAGULATION
     Route: 042
     Dates: start: 20041202, end: 20041226
  3. PREDONINE [Concomitant]
     Indication: VASCULITIS
     Route: 042
     Dates: start: 20041106
  4. BENAMBAX [Concomitant]
     Indication: PNEUMONIA
     Dates: start: 20041119
  5. CIPROXAN [Concomitant]
     Indication: PNEUMONIA
     Route: 042
     Dates: start: 20041129, end: 20041208
  6. GANCICLOVIR [Concomitant]
     Indication: PNEUMONIA
     Route: 042
     Dates: start: 20041203, end: 20041219

REACTIONS (2)
  - DISSEMINATED INTRAVASCULAR COAGULATION [None]
  - HYPONATRAEMIA [None]
